FAERS Safety Report 9680908 (Version 2)
Quarter: 2015Q4

REPORT INFORMATION
  Report Type: Report from Study
  Country: US (occurrence: US)
  Receive Date: 20131111
  Receipt Date: 20151029
  Transmission Date: 20160305
  Serious: Yes (Death, Hospitalization)
  Sender: FDA-Public Use
  Company Number: US-ROCHE-1301904

PATIENT
  Age: 89 Year
  Sex: Female

DRUGS (4)
  1. FORTEO [Concomitant]
     Active Substance: TERIPARATIDE
     Indication: OSTEOPOROSIS
     Route: 065
  2. LIPITOR [Concomitant]
     Active Substance: ATORVASTATIN CALCIUM
  3. LUCENTIS [Suspect]
     Active Substance: RANIBIZUMAB
     Indication: NEOVASCULAR AGE-RELATED MACULAR DEGENERATION
     Route: 050
  4. OMEPRAZOLE. [Concomitant]
     Active Substance: OMEPRAZOLE

REACTIONS (6)
  - Fall [Unknown]
  - Depressed level of consciousness [Fatal]
  - Urinary tract infection [Unknown]
  - Intestinal obstruction [Unknown]
  - Cerebrovascular accident [Fatal]
  - Gastrointestinal disorder [Unknown]

NARRATIVE: CASE EVENT DATE: 2013
